FAERS Safety Report 4737067-7 (Version None)
Quarter: 2005Q3

REPORT INFORMATION
  Report Type: 
  Country: None (occurrence: None)
  Receive Date: 20050804
  Receipt Date: 20050722
  Transmission Date: 20060218
  Serious: Yes (Hospitalization)
  Sender: FDA-Public Use
  Company Number: HQWYE411122JUL05

PATIENT
  Age: 10 Year
  Sex: Male

DRUGS (8)
  1. CELLCEPT, CONTROL FOR SIROLIMUS [Suspect]
     Indication: IMMUNOSUPPRESSION
     Dosage: 500 MG IN THE MORNING AND 250 MG IN THE EVENING, ORAL
     Route: 048
     Dates: start: 20041201
  2. CELLCEPT, CONTROL FOR SIROLIMUS [Suspect]
     Indication: PROPHYLAXIS AGAINST TRANSPLANT REJECTION
     Dosage: 500 MG IN THE MORNING AND 250 MG IN THE EVENING, ORAL
     Route: 048
     Dates: start: 20041201
  3. PREDNISONE [Concomitant]
  4. TACROLIMUS (TACROLIMUS) [Concomitant]
  5. CALCITRIOL [Concomitant]
  6. DOCUSATE SODIUM (DOCUSATE SODIUM) [Concomitant]
  7. ENALAPRIL MALEATE [Concomitant]
  8. FOLIC ACID [Concomitant]

REACTIONS (1)
  - KIDNEY TRANSPLANT REJECTION [None]
